FAERS Safety Report 6839545-3 (Version None)
Quarter: 2010Q3

REPORT INFORMATION
  Report Type: 
  Country: None (occurrence: None)
  Receive Date: 20100714
  Receipt Date: 20100119
  Transmission Date: 20110219
  Serious: No
  Sender: FDA-Public Use
  Company Number: A0840280A

PATIENT
  Age: 63 Year
  Sex: Male

DRUGS (3)
  1. FLOVENT [Suspect]
     Indication: ASTHMA
     Dosage: 2PUFF TWICE PER DAY
     Route: 055
     Dates: start: 20000101
  2. PROAIR HFA [Concomitant]
  3. LIPITOR [Concomitant]

REACTIONS (2)
  - COUGH [None]
  - PRODUCTIVE COUGH [None]
